FAERS Safety Report 23633669 (Version 1)
Quarter: 2024Q1

REPORT INFORMATION
  Report Type: Spontaneous
  Country: RU (occurrence: None)
  Receive Date: 20240314
  Receipt Date: 20240314
  Transmission Date: 20240410
  Serious: Yes (Life-Threatening, Hospitalization, Other)
  Sender: FDA-Public Use
  Company Number: 2024A062684

PATIENT
  Age: 12 Year
  Sex: Male

DRUGS (2)
  1. SYMBICORT [Suspect]
     Active Substance: BUDESONIDE\FORMOTEROL FUMARATE DIHYDRATE
     Indication: Asthma
     Dosage: 4,5 + 80 MCG/DOSE 2 INHALES IN THE MORNING AND 2 INHALES IN THE EVENING
     Route: 055
  2. FLUTICASONE PROPIONATE\SALMETEROL XINAFOATE [Concomitant]
     Active Substance: FLUTICASONE PROPIONATE\SALMETEROL XINAFOATE

REACTIONS (5)
  - Asthma [Recovering/Resolving]
  - Respiratory failure [Recovering/Resolving]
  - Polyneuropathy [Unknown]
  - Movement disorder [Recovering/Resolving]
  - Intentional product misuse [Unknown]
